FAERS Safety Report 8328040-0 (Version None)
Quarter: 2012Q2

REPORT INFORMATION
  Report Type: 
  Country: None (occurrence: None)
  Receive Date: 20120502
  Receipt Date: 20120420
  Transmission Date: 20120825
  Serious: Yes (Other)
  Sender: FDA-Public Use
  Company Number: PHHY2011US39328

PATIENT
  Age: 47 Year
  Sex: Female

DRUGS (2)
  1. IMATINIB MESYLATE [Suspect]
     Indication: ACUTE LYMPHOCYTIC LEUKAEMIA
     Dosage: 600 MG, DAILY
  2. CHEMOTHERAPEUTICS NOS [Concomitant]
     Indication: ACUTE LYMPHOCYTIC LEUKAEMIA

REACTIONS (6)
  - SPINAL CORD HERNIATION [None]
  - SUBDURAL HAEMATOMA [None]
  - HEADACHE [None]
  - VISION BLURRED [None]
  - THROMBOCYTOPENIA [None]
  - LEUKAEMIA RECURRENT [None]
